FAERS Safety Report 5001928-4 (Version None)
Quarter: 2006Q2

REPORT INFORMATION
  Report Type: 
  Country: None (occurrence: None)
  Receive Date: 20060515
  Receipt Date: 20051019
  Transmission Date: 20061013
  Serious: Yes (Disabling)
  Sender: FDA-Public Use
  Company Number: US-MERCK-0510USA08230

PATIENT
  Age: 54 Year
  Sex: Male
  Weight: 89 kg

DRUGS (8)
  1. VIOXX [Suspect]
     Indication: ARTHRALGIA
     Route: 048
     Dates: start: 20010101, end: 20031001
  2. VIOXX [Suspect]
     Route: 048
     Dates: start: 20040401, end: 20040901
  3. ASPIRIN [Concomitant]
     Indication: PROPHYLAXIS
     Route: 065
  4. VIAGRA [Concomitant]
     Route: 065
  5. IBUPROFEN [Concomitant]
     Indication: HEADACHE
     Route: 065
     Dates: start: 19931001
  6. IBUPROFEN [Concomitant]
     Indication: MYALGIA
     Route: 065
     Dates: start: 19931001
  7. [THERAPY UNSPECIFIED] [Concomitant]
     Route: 065
  8. ALEVE (CAPLET) [Concomitant]
     Indication: ARTHRALGIA
     Route: 065
     Dates: start: 19970101

REACTIONS (6)
  - DEEP VEIN THROMBOSIS [None]
  - GASTRIC HAEMORRHAGE [None]
  - INTESTINAL HAEMORRHAGE [None]
  - POST THROMBOTIC SYNDROME [None]
  - RECTAL HAEMORRHAGE [None]
  - SLEEP APNOEA SYNDROME [None]
